FAERS Safety Report 17274463 (Version 1)
Quarter: 2020Q1

REPORT INFORMATION
  Report Type: Spontaneous
  Country: US (occurrence: US)
  Receive Date: 20200115
  Receipt Date: 20200115
  Transmission Date: 20200409
  Serious: Yes (Hospitalization)
  Sender: FDA-Public Use
  Company Number: US-UNITED THERAPEUTICS-UNT-2020-000291

PATIENT
  Sex: Male

DRUGS (1)
  1. REMODULIN [Suspect]
     Active Substance: TREPROSTINIL
     Indication: PULMONARY HYPERTENSION
     Dosage: 0.190 ?G/KG, CONTINUING
     Route: 041
     Dates: start: 201902

REACTIONS (4)
  - Fluid overload [Unknown]
  - Urine output decreased [Unknown]
  - Dyspnoea [Unknown]
  - Malaise [Unknown]
